FAERS Safety Report 5186279-X (Version None)
Quarter: 2006Q4

REPORT INFORMATION
  Report Type: 
  Country: None (occurrence: None)
  Receive Date: 20061220
  Receipt Date: 20061213
  Transmission Date: 20070319
  Serious: Yes (Other)
  Sender: FDA-Public Use
  Company Number: US-JNJFOC-20061100564

PATIENT
  Sex: Female
  Weight: 56.7 kg

DRUGS (6)
  1. MOTRIN [Suspect]
     Indication: PAIN
     Route: 048
  2. ALEVE [Suspect]
     Indication: NASOPHARYNGITIS
     Route: 048
  3. ONE A DAY 50 PLUS [Suspect]
     Indication: VITAMIN SUPPLEMENTATION
     Route: 048
  4. SYNTHROID [Concomitant]
     Indication: DRUG USE FOR UNKNOWN INDICATION
  5. ZOCOR [Concomitant]
     Indication: DRUG USE FOR UNKNOWN INDICATION
  6. VITAMIN E [Concomitant]
     Indication: DRUG USE FOR UNKNOWN INDICATION

REACTIONS (4)
  - DYSPNOEA [None]
  - MUSCULOSKELETAL DISCOMFORT [None]
  - OEDEMA PERIPHERAL [None]
  - SWELLING [None]
